FAERS Safety Report 14926101 (Version 2)
Quarter: 2020Q4

REPORT INFORMATION
  Report Type: Spontaneous
  Country: FR (occurrence: FR)
  Receive Date: 20180522
  Receipt Date: 20201007
  Transmission Date: 20210113
  Serious: Yes (Hospitalization)
  Sender: FDA-Public Use
  Company Number: FR-TEVA-2018-FR-896140

PATIENT
  Age: 62 Year
  Sex: Female

DRUGS (3)
  1. NEFOPAM (CHLORHYDRATE DE) [Suspect]
     Active Substance: NEFOPAM HYDROCHLORIDE
     Indication: PAIN
     Route: 065
     Dates: start: 20171213, end: 20171220
  2. DOXYCYCLINE. [Suspect]
     Active Substance: DOXYCYCLINE
     Indication: INFECTION
     Dosage: 200 MG
     Dates: start: 20171219, end: 20171221
  3. TIENAM [Suspect]
     Active Substance: CILASTATIN SODIUM\IMIPENEM
     Indication: INFECTION
     Route: 065
     Dates: start: 20171215, end: 20171222

REACTIONS (1)
  - Hepatocellular injury [Recovered/Resolved]

NARRATIVE: CASE EVENT DATE: 20171221
